FAERS Safety Report 6577333-6 (Version None)
Quarter: 2010Q1

REPORT INFORMATION
  Report Type: 
  Country: None (occurrence: None)
  Receive Date: 20100210
  Receipt Date: 20100202
  Transmission Date: 20100710
  Serious: Yes (Death, Life-Threatening, Hospitalization)
  Sender: FDA-Public Use
  Company Number: US-ABBOTT-09P-163-0503389-00

PATIENT
  Sex: Female
  Weight: 45.4 kg

DRUGS (11)
  1. HUMIRA [Suspect]
     Indication: PSORIASIS
     Route: 058
     Dates: start: 20081216, end: 20090114
  2. TRIAMCINOLONE [Concomitant]
     Indication: PSORIASIS
     Dates: start: 20080909
  3. ETANERCEPT [Concomitant]
     Indication: PSORIASIS
     Dates: start: 20080922, end: 20081216
  4. SECTRAL [Concomitant]
     Indication: HYPERTENSION
     Dates: end: 20090208
  5. VASOTEC [Concomitant]
     Indication: HYPERTENSION
     Dates: end: 20090208
  6. NORVASC [Concomitant]
     Indication: HYPERTENSION
     Dates: end: 20090208
  7. FOLATE [Concomitant]
     Indication: FOLATE DEFICIENCY
     Dates: end: 20090208
  8. ZOCOR [Concomitant]
     Indication: HYPERCHOLESTEROLAEMIA
     Dates: end: 20090208
  9. LASIX [Concomitant]
     Indication: CARDIAC FAILURE CONGESTIVE
     Dates: end: 20090208
  10. PRILOSEC [Concomitant]
     Indication: GASTROOESOPHAGEAL REFLUX DISEASE
     Dates: end: 20090208
  11. ASPIRIN [Concomitant]
     Indication: CARDIAC FAILURE CONGESTIVE
     Dates: end: 20090208

REACTIONS (5)
  - ABSCESS LIMB [None]
  - CARDIAC FAILURE CONGESTIVE [None]
  - PNEUMONIA ASPIRATION [None]
  - SEPSIS [None]
  - SYSTEMIC INFLAMMATORY RESPONSE SYNDROME [None]
